FAERS Safety Report 8549772-5 (Version None)
Quarter: 2012Q3

REPORT INFORMATION
  Report Type: 
  Country: None (occurrence: None)
  Receive Date: 20120730
  Receipt Date: 20120721
  Transmission Date: 20120928
  Serious: Yes (Other)
  Sender: FDA-Public Use
  Company Number: BR-ASTRAZENECA-2012SE52073

PATIENT
  Age: 79 Year
  Sex: Female
  Weight: 62 kg

DRUGS (10)
  1. CANDESARTAN CILEXETIL [Suspect]
     Dosage: GENERIC
     Route: 048
     Dates: end: 20120721
  2. VASTAREL [Concomitant]
     Route: 048
  3. METFORMIN HYDROCHLORIDE [Concomitant]
     Route: 048
  4. LIPITOR [Concomitant]
     Route: 048
  5. ATENOLOL [Suspect]
     Indication: HYPERTENSION
     Route: 048
  6. CANDESARTAN CILEXETIL [Suspect]
     Indication: HYPERTENSION
     Route: 048
  7. CANDESARTAN CILEXETIL [Suspect]
     Route: 048
  8. ADALAT [Concomitant]
     Route: 048
  9. ASPIRIN [Concomitant]
     Route: 048
  10. PLAVIX [Concomitant]
     Route: 048

REACTIONS (1)
  - CORONARY ARTERY OCCLUSION [None]
